FAERS Safety Report 22681865 (Version 7)
Quarter: 2023Q4

REPORT INFORMATION
  Report Type: Report from Study
  Country: US (occurrence: US)
  Receive Date: 20230707
  Receipt Date: 20231219
  Transmission Date: 20240110
  Serious: No
  Sender: FDA-Public Use
  Company Number: US-002147023-NVSC2023US152414

PATIENT
  Sex: Female

DRUGS (3)
  1. ENTRESTO [Suspect]
     Active Substance: SACUBITRIL\VALSARTAN
     Indication: Dyspnoea exertional
     Dosage: 0.5 DOSAGE FORM, BID
     Route: 048
     Dates: start: 202306
  2. METOPROLOL [Suspect]
     Active Substance: METOPROLOL
     Indication: Product used for unknown indication
     Dosage: UNK
     Route: 065
  3. SPIRONOLACTONE [Concomitant]
     Active Substance: SPIRONOLACTONE
     Indication: Product used for unknown indication
     Dosage: 0.5 DOSAGE FORM, QD (2 TIMES PER NIGHT)
     Route: 065

REACTIONS (12)
  - Oral candidiasis [Unknown]
  - Heart rate decreased [Unknown]
  - Gait disturbance [Unknown]
  - Vocal cord disorder [Unknown]
  - Joint swelling [Recovering/Resolving]
  - Palpitations [Unknown]
  - Dyspnoea exertional [Recovered/Resolved]
  - Product dose omission issue [Unknown]
  - Wrong technique in product usage process [Unknown]
  - Drug ineffective for unapproved indication [Unknown]
  - Joint swelling [Recovering/Resolving]
  - Memory impairment [Unknown]
